FAERS Safety Report 24539361 (Version 1)
Quarter: 2024Q4

REPORT INFORMATION
  Report Type: Spontaneous
  Country: GB (occurrence: GB)
  Receive Date: 20241023
  Receipt Date: 20241023
  Transmission Date: 20250114
  Serious: Yes (Other)
  Sender: PFIZER
  Company Number: GB-MHRA-TPP16093194C10368289YC1729438257810

PATIENT
  Age: 48 Year
  Sex: Female
  Weight: 79 kg

DRUGS (11)
  1. DALTEPARIN SODIUM [Suspect]
     Active Substance: DALTEPARIN SODIUM
     Dosage: 10,000UNITS/4ML
     Dates: start: 20240920
  2. NAPROXEN [Concomitant]
     Active Substance: NAPROXEN
     Indication: Ill-defined disorder
     Dosage: TAKE ONE 3 TIMES/DAY WITH/AFTER FOOD
     Dates: start: 20240725, end: 20240801
  3. DIHYDROCODEINE [Concomitant]
     Active Substance: DIHYDROCODEINE
     Indication: Ill-defined disorder
     Dosage: TAKE ONE EVERY 4-6 HRS
     Dates: start: 20240819, end: 20240820
  4. DEPO-PROVERA [Concomitant]
     Active Substance: MEDROXYPROGESTERONE ACETATE
     Indication: Ill-defined disorder
     Dosage: 12 WEEKLY
     Dates: start: 20240827
  5. COCODAMOL [Concomitant]
     Active Substance: ACETAMINOPHEN\CODEINE PHOSPHATE
     Indication: Ill-defined disorder
     Dosage: TAKE ONE OR TWO TABLETS FOUR TIMES/DAY AS REQUIRED
     Dates: start: 20241007, end: 20241019
  6. FEXOFENADINE [Concomitant]
     Active Substance: FEXOFENADINE HYDROCHLORIDE
     Indication: Ill-defined disorder
     Dosage: TAKE ONE TABLET DAILY
     Dates: start: 20240930
  7. FLUCLOXACILLIN [Concomitant]
     Active Substance: FLUCLOXACILLIN
     Indication: Ill-defined disorder
     Dosage: TAKE ONE CAPSULE FOUR TIMES DAILY FOR 7 DAYS
     Dates: start: 20240906, end: 20240913
  8. MENTHOL [Concomitant]
     Active Substance: MENTHOL
     Indication: Ill-defined disorder
     Dosage: APPLY TWICE DAILY
     Dates: start: 20240912, end: 20241010
  9. ARJUNA [Concomitant]
     Indication: Ill-defined disorder
     Dosage: USE AS DIRECTED
     Dates: start: 20241018
  10. DERMOL [NEOMYCIN SULFATE;PREDNISOLONE] [Concomitant]
     Indication: Ill-defined disorder
     Dosage: USE INSTEAD OF SOAP WHEN SKIN INTEGRITY IS COMP...
     Dates: start: 20241018
  11. PERMETHRIN [Concomitant]
     Active Substance: PERMETHRIN
     Indication: Ill-defined disorder
     Dosage: APPLY TO COOL, DRY SKIN AND ALLOW TO DRY BEFORE...
     Dates: start: 20241018

REACTIONS (2)
  - Rash pruritic [Recovering/Resolving]
  - Rash papular [Recovering/Resolving]
